FAERS Safety Report 9197225 (Version 1)
Quarter: 2013Q1

REPORT INFORMATION
  Report Type: Spontaneous
  Country: US (occurrence: None)
  Receive Date: 20120709
  Receipt Date: 20120709
  Transmission Date: 20140127
  Serious: No
  Sender: FDA-Public Use
  Company Number: 2012HGS-003564

PATIENT
  Age: 22 Year
  Sex: Female
  Weight: 72.58 kg

DRUGS (4)
  1. BENLYSTA [Suspect]
     Indication: SYSTEMIC LUPUS ERYTHEMATOSUS
     Dosage: 1 IN 28 D , INTRAVENOUS DRIP
     Dates: start: 20120420
  2. MEDROL [Suspect]
  3. CELLCEPT [Concomitant]
  4. PLAQUENIL [Concomitant]

REACTIONS (5)
  - Dizziness [None]
  - Nausea [None]
  - Adverse reaction [None]
  - Systemic lupus erythematosus [None]
  - Pain [None]
